FAERS Safety Report 12688775 (Version 2)
Quarter: 2016Q4

REPORT INFORMATION
  Report Type: Spontaneous
  Country: US (occurrence: US)
  Receive Date: 20160826
  Receipt Date: 20161208
  Transmission Date: 20170207
  Serious: Yes (Other)
  Sender: FDA-Public Use
  Company Number: PHEH2016US021009

PATIENT
  Age: 27 Year
  Sex: Male

DRUGS (1)
  1. COSENTYX [Suspect]
     Active Substance: SECUKINUMAB
     Indication: PSORIASIS
     Dosage: 300 MG, QW
     Route: 065
     Dates: start: 20160801, end: 20160801

REACTIONS (8)
  - Faeces discoloured [Unknown]
  - Hepatic enzyme increased [Recovering/Resolving]
  - Transaminases increased [Recovered/Resolved]
  - Abdominal pain [Unknown]
  - Hepatitis [Unknown]
  - Jaundice [Unknown]
  - Chromaturia [Unknown]
  - Abdominal pain upper [Unknown]

NARRATIVE: CASE EVENT DATE: 20160809
